FAERS Safety Report 6360223-1 (Version None)
Quarter: 2009Q3

REPORT INFORMATION
  Report Type: 
  Country: None (occurrence: None)
  Receive Date: 20090917
  Receipt Date: 20090908
  Transmission Date: 20100115
  Serious: Yes (Death)
  Sender: FDA-Public Use
  Company Number: US-BAXTER-2009BH014025

PATIENT

DRUGS (5)
  1. MIDAZOLAM HYDROCHLORIDE [Suspect]
     Indication: ANAESTHESIA PROCEDURE
     Route: 065
  2. FENTANYL [Suspect]
     Indication: ANAESTHESIA PROCEDURE
     Route: 065
  3. PROPOFOL [Suspect]
     Indication: ANAESTHESIA PROCEDURE
     Route: 065
  4. SUCCINYLCHOLINE [Suspect]
     Indication: ANAESTHESIA PROCEDURE
     Route: 065
  5. VECURONIUM BROMIDE [Suspect]
     Indication: ANAESTHESIA PROCEDURE
     Route: 065

REACTIONS (1)
  - ANAPHYLACTIC REACTION [None]
